FAERS Safety Report 8389836-2 (Version None)
Quarter: 2012Q2

REPORT INFORMATION
  Report Type: 
  Country: None (occurrence: None)
  Receive Date: 20120529
  Receipt Date: 20120517
  Transmission Date: 20120825
  Serious: Yes (Other)
  Sender: FDA-Public Use
  Company Number: GB-BAYER-2012-051853

PATIENT
  Sex: Female

DRUGS (1)
  1. MIRENA [Suspect]
     Dosage: 20 MCG/24HR, CONT
     Route: 015
     Dates: start: 20080101

REACTIONS (6)
  - VAGINAL HAEMORRHAGE [None]
  - FUNGAL INFECTION [None]
  - VULVOVAGINAL PRURITUS [None]
  - ALOPECIA [None]
  - WEIGHT LOSS POOR [None]
  - MOOD SWINGS [None]
